FAERS Safety Report 7769385-2 (Version None)
Quarter: 2011Q3

REPORT INFORMATION
  Report Type: 
  Country: None (occurrence: None)
  Receive Date: 20110922
  Receipt Date: 20110606
  Transmission Date: 20111222
  Serious: Yes (Hospitalization)
  Sender: FDA-Public Use
  Company Number: US-ASTRAZENECA-2011SE34628

PATIENT
  Age: 58 Year
  Sex: Male
  Weight: 57.2 kg

DRUGS (5)
  1. SEROQUEL [Suspect]
     Indication: BIPOLAR DISORDER
     Route: 048
     Dates: end: 20110526
  2. SEROQUEL [Suspect]
     Indication: HALLUCINATION, AUDITORY
     Route: 048
     Dates: end: 20110526
  3. SEROQUEL [Suspect]
     Route: 048
     Dates: start: 20110526
  4. SEROQUEL [Suspect]
     Route: 048
     Dates: start: 20110526
  5. METFORMIN [Concomitant]

REACTIONS (5)
  - CHEST PAIN [None]
  - BLOOD CHOLESTEROL INCREASED [None]
  - INSOMNIA [None]
  - WEIGHT DECREASED [None]
  - INTESTINAL OBSTRUCTION [None]
